FAERS Safety Report 22237149 (Version 2)
Quarter: 2023Q2

REPORT INFORMATION
  Report Type: Spontaneous
  Country: US (occurrence: None)
  Receive Date: 20230421
  Receipt Date: 20230421
  Transmission Date: 20230721
  Serious: No
  Sender: FDA-Public Use
  Company Number: US-ROCHE-3229210

PATIENT
  Sex: Male

DRUGS (5)
  1. ESBRIET [Suspect]
     Active Substance: PIRFENIDONE
     Indication: Idiopathic pulmonary fibrosis
     Dosage: TAKE 3 CAPSULES BY MOUTH THREE TIMES A DAY.
     Route: 048
  2. CALCIUM [Concomitant]
     Active Substance: CALCIUM
  3. DOXAZOSIN [Concomitant]
     Active Substance: DOXAZOSIN MESYLATE
  4. FINASTERIDE [Concomitant]
     Active Substance: FINASTERIDE
  5. OMEGA 3 [Concomitant]
     Active Substance: CAPSAICIN

REACTIONS (1)
  - Decreased appetite [Unknown]
